FAERS Safety Report 12476130 (Version 2)
Quarter: 2016Q2

REPORT INFORMATION
  Report Type: Spontaneous
  Country: CH (occurrence: CH)
  Receive Date: 20160617
  Receipt Date: 20160627
  Transmission Date: 20160815
  Serious: Yes (Hospitalization)
  Sender: FDA-Public Use
  Company Number: CH-INDIVIOR LIMITED-INDV-091366-2016

PATIENT
  Age: 82 Year
  Sex: Male

DRUGS (13)
  1. TEMGESIC [Suspect]
     Active Substance: BUPRENORPHINE HYDROCHLORIDE
     Dosage: 0.2 MG, THREE TIMES PER DAY
     Route: 060
     Dates: start: 20160507, end: 20160508
  2. TEMGESIC [Suspect]
     Active Substance: BUPRENORPHINE HYDROCHLORIDE
     Dosage: 0.3MG, THREE TIMES PER DAY
     Route: 060
     Dates: start: 20160509, end: 20160511
  3. GEVILON [Concomitant]
     Active Substance: GEMFIBROZIL
     Indication: PRODUCT USED FOR UNKNOWN INDICATION
     Dosage: 450 MG, 1 PER DAY
     Route: 048
  4. CALCIMAGON D3 [Concomitant]
     Active Substance: CALCIUM\CHOLECALCIFEROL
     Indication: PRODUCT USED FOR UNKNOWN INDICATION
     Dosage: 1 DF (DOSAGE FORM) 1000 MG/800IU, 1 PER DAY
     Route: 048
  5. CALCIPARINE [Concomitant]
     Active Substance: HEPARIN CALCIUM
     Indication: PRODUCT USED FOR UNKNOWN INDICATION
     Dosage: 5000 IU, 2 PER DAY
     Route: 058
     Dates: start: 20160504
  6. AUGMENTIN [Concomitant]
     Active Substance: AMOXICILLIN\CLAVULANATE POTASSIUM
     Dosage: 625 MG, 2 TIMES PER DAY
     Route: 048
     Dates: start: 20160510, end: 20160511
  7. TEMGESIC [Suspect]
     Active Substance: BUPRENORPHINE HYDROCHLORIDE
     Indication: PAIN
     Dosage: 0.1 MG, THREE TIMES PER DAY
     Route: 060
     Dates: start: 20160504, end: 20160506
  8. TAZOBAC [Suspect]
     Active Substance: PIPERACILLIN SODIUM\TAZOBACTAM SODIUM
     Indication: INFECTION
     Dosage: 4.5 G, 2 PER DAY
     Route: 042
     Dates: start: 20160511, end: 20160516
  9. EXFORGE+VALSARTAN [Concomitant]
     Indication: PRODUCT USED FOR UNKNOWN INDICATION
     Dosage: 10MG /160 MG PER DAY
     Route: 048
     Dates: end: 20160504
  10. FOSAMAX [Concomitant]
     Active Substance: ALENDRONATE SODIUM
     Indication: PRODUCT USED FOR UNKNOWN INDICATION
     Dosage: 70 MG, 1 PER WEEK
     Route: 048
     Dates: end: 20160504
  11. AMLODIPIN                          /00972401/ [Concomitant]
     Active Substance: AMLODIPINE BESYLATE
     Indication: PRODUCT USED FOR UNKNOWN INDICATION
     Dosage: 10 MG, 1 PER DAY
     Route: 048
     Dates: start: 20160504
  12. DAFALGAN [Concomitant]
     Active Substance: ACETAMINOPHEN
     Indication: PAIN
     Dosage: 1 G, 3 PER DAY
     Route: 048
     Dates: start: 20160504, end: 20160518
  13. AUGMENTIN [Concomitant]
     Active Substance: AMOXICILLIN\CLAVULANATE POTASSIUM
     Indication: PRODUCT USED FOR UNKNOWN INDICATION
     Dosage: 1.2 G, 3 TIMES PER DAY
     Route: 042
     Dates: start: 20160507, end: 20160510

REACTIONS (5)
  - Disturbance in attention [Recovered/Resolved]
  - Sleep apnoea syndrome [Unknown]
  - Myoclonus [Recovered/Resolved]
  - Lung infection [Unknown]
  - Condition aggravated [Unknown]

NARRATIVE: CASE EVENT DATE: 201605
